FAERS Safety Report 4655468-2 (Version None)
Quarter: 2005Q2

REPORT INFORMATION
  Report Type: 
  Country: None (occurrence: None)
  Receive Date: 20050505
  Receipt Date: 20050421
  Transmission Date: 20051028
  Serious: Yes (Life-Threatening, Hospitalization)
  Sender: FDA-Public Use
  Company Number: S03-USA-04774-01

PATIENT
  Age: 29 Year
  Sex: Female
  Weight: 143 kg

DRUGS (20)
  1. LEXAPRO [Suspect]
     Indication: BIPOLAR DISORDER
     Dates: start: 20031113, end: 20031113
  2. LEXAPRO [Suspect]
     Indication: DEPRESSION
     Dates: start: 20031113, end: 20031113
  3. ELAVIL [Suspect]
     Indication: BIPOLAR DISORDER
     Dosage: 150 MG QD
     Dates: start: 20030915, end: 20031113
  4. ELAVIL [Suspect]
     Indication: BIPOLAR DISORDER
     Dosage: 75 MG QD
     Dates: end: 20030914
  5. TOPAMAX [Concomitant]
  6. KLONOPIN [Concomitant]
  7. ATIVAN [Concomitant]
  8. NEURONTIN [Concomitant]
  9. TAMBOCOR [Concomitant]
  10. PERCOCET [Concomitant]
  11. OXYCONTIN [Concomitant]
  12. ZANAFLEX [Concomitant]
  13. LASIX [Concomitant]
  14. K-DUR 10 [Concomitant]
  15. ALLOPURINOL [Concomitant]
  16. LIDODERM (LIDOCAINE) [Concomitant]
  17. NITROGLYCERIN [Concomitant]
  18. RISPERDAL [Concomitant]
  19. LITHIUM CARBONATE [Concomitant]
  20. AMBIEN [Concomitant]

REACTIONS (47)
  - ABNORMAL BEHAVIOUR [None]
  - ACTIVATED PARTIAL THROMBOPLASTIN TIME PROLONGED [None]
  - AREFLEXIA [None]
  - ARRHYTHMIA [None]
  - BALANCE DISORDER [None]
  - BLOOD SODIUM DECREASED [None]
  - CONFUSIONAL STATE [None]
  - CYANOSIS [None]
  - DEMYELINATION [None]
  - DEPRESSED LEVEL OF CONSCIOUSNESS [None]
  - DIALYSIS [None]
  - DRUG ABUSER [None]
  - DRUG LEVEL DECREASED [None]
  - DRUG WITHDRAWAL SYNDROME [None]
  - DYSPNOEA [None]
  - ENCEPHALITIS [None]
  - ENCEPHALITIS HERPES [None]
  - ENCEPHALOPATHY [None]
  - FALL [None]
  - HAEMATOCRIT INCREASED [None]
  - HAEMOCONCENTRATION [None]
  - HAEMODYNAMIC INSTABILITY [None]
  - HAEMOGLOBIN INCREASED [None]
  - HERPES SIMPLEX [None]
  - HERPES ZOSTER [None]
  - HYPOCALCAEMIA [None]
  - HYPOTENSION [None]
  - LOSS OF CONSCIOUSNESS [None]
  - MENINGITIS [None]
  - METABOLIC ACIDOSIS [None]
  - MYDRIASIS [None]
  - NAUSEA [None]
  - NEUROLEPTIC MALIGNANT SYNDROME [None]
  - NUCHAL RIGIDITY [None]
  - OLIGURIA [None]
  - PALPITATIONS [None]
  - PARAPLEGIA [None]
  - POLYMYOSITIS [None]
  - PUPILLARY REFLEX IMPAIRED [None]
  - RENAL FAILURE ACUTE [None]
  - RHABDOMYOLYSIS [None]
  - SEROTONIN SYNDROME [None]
  - SHOCK [None]
  - SINUS TACHYCARDIA [None]
  - STOMACH DISCOMFORT [None]
  - URINE ABNORMALITY [None]
  - VAGINAL MYCOSIS [None]
